FAERS Safety Report 18203081 (Version 2)
Quarter: 2020Q3

REPORT INFORMATION
  Report Type: Report from Study
  Country: RU (occurrence: RU)
  Receive Date: 20200827
  Receipt Date: 20200829
  Transmission Date: 20201103
  Serious: Yes (Other)
  Sender: FDA-Public Use
  Company Number: NVSC2020RU234016

PATIENT
  Age: 69 Year
  Sex: Female

DRUGS (3)
  1. GALVUS MET [Suspect]
     Active Substance: METFORMIN HYDROCHLORIDE\VILDAGLIPTIN
     Indication: DIABETES MELLITUS
     Dosage: 1050 UNK, BID (50/1000, ONE TABLET IN THE MORNING AND IN THE EVENING)
     Route: 048
     Dates: start: 20200818
  2. WARFARIN [Concomitant]
     Active Substance: WARFARIN
     Indication: PRODUCT USED FOR UNKNOWN INDICATION
     Dosage: 2.5 MG, QD (1.25 TABLET)
     Route: 065
  3. LIPRIMAR [Concomitant]
     Active Substance: ATORVASTATIN CALCIUM
     Indication: PRODUCT USED FOR UNKNOWN INDICATION
     Dosage: 1 DF, QD (ONCE PER DAY IN THE EVENING)
     Route: 065

REACTIONS (8)
  - Diarrhoea [Unknown]
  - Abdominal pain upper [Recovered/Resolved]
  - Dizziness [Unknown]
  - Heart rate increased [Unknown]
  - Pain [Unknown]
  - Angina pectoris [Unknown]
  - Confusional state [Unknown]
  - Malaise [Unknown]

NARRATIVE: CASE EVENT DATE: 20200821
